FAERS Safety Report 16551499 (Version 1)
Quarter: 2019Q3

REPORT INFORMATION
  Report Type: Spontaneous
  Country: US (occurrence: US)
  Receive Date: 20190529
  Receipt Date: 20190529
  Transmission Date: 20191004
  Serious: Yes (Hospitalization)
  Sender: FDA-Public Use
  Company Number: None

PATIENT
  Age: 25 Year
  Sex: Female

DRUGS (1)
  1. GLATIRAMER 40MG/ML PFS [Suspect]
     Active Substance: GLATIRAMER
     Indication: MULTIPLE SCLEROSIS
     Dosage: INJ 40MG Q WEDS AND FRI SC
     Route: 058
     Dates: start: 20181002

REACTIONS (2)
  - Flushing [None]
  - Palpitations [None]

NARRATIVE: CASE EVENT DATE: 20190527
